FAERS Safety Report 6126966-X (Version None)
Quarter: 2009Q1

REPORT INFORMATION
  Report Type: 
  Country: None (occurrence: None)
  Receive Date: 20090320
  Receipt Date: 20081010
  Transmission Date: 20090719
  Serious: No
  Sender: FDA-Public Use
  Company Number: US-ABBOTT-08P-163-0481873-00

PATIENT
  Sex: Female

DRUGS (1)
  1. ERYTHROMYCIN [Suspect]
     Indication: INFECTION
     Route: 048

REACTIONS (2)
  - ABDOMINAL PAIN UPPER [None]
  - NAUSEA [None]
